FAERS Safety Report 8191910-0 (Version None)
Quarter: 2012Q1

REPORT INFORMATION
  Report Type: 
  Country: None (occurrence: None)
  Receive Date: 20120307
  Receipt Date: 20120227
  Transmission Date: 20120608
  Serious: Yes (Hospitalization)
  Sender: FDA-Public Use
  Company Number: PHHY2010JP87829

PATIENT
  Age: 23 Year
  Sex: Female

DRUGS (5)
  1. LITHIUM CARBONATE [Suspect]
     Indication: BIPOLAR DISORDER
     Dosage: 5600 MG, UNK
     Route: 048
     Dates: start: 20090911
  2. DEPAKENE [Suspect]
     Indication: BIPOLAR DISORDER
     Dosage: 4200 MG, UNK
     Route: 048
     Dates: start: 20090911
  3. RISPERDAL [Suspect]
     Indication: BIPOLAR DISORDER
     Dosage: 7 MG, UNK
     Route: 048
     Dates: start: 20090911
  4. ALCOHOL [Concomitant]
  5. TEGRETOL [Suspect]
     Indication: BIPOLAR DISORDER
     Dosage: 4200 MG, DAILY
     Route: 048
     Dates: start: 20090911

REACTIONS (15)
  - INTENTIONAL SELF-INJURY [None]
  - ATELECTASIS [None]
  - MEDICATION RESIDUE [None]
  - SPUTUM INCREASED [None]
  - COMA [None]
  - ANTICONVULSANT DRUG LEVEL INCREASED [None]
  - MULTIPLE DRUG OVERDOSE INTENTIONAL [None]
  - SUICIDAL IDEATION [None]
  - INTENTIONAL OVERDOSE [None]
  - PNEUMONIA ASPIRATION [None]
  - PYREXIA [None]
  - RESPIRATION ABNORMAL [None]
  - LACERATION [None]
  - SOMNOLENCE [None]
  - ALTERED STATE OF CONSCIOUSNESS [None]
